FAERS Safety Report 9412131 (Version 1)
Quarter: 2013Q3

REPORT INFORMATION
  Report Type: Spontaneous
  Country: US (occurrence: None)
  Receive Date: 20130719
  Receipt Date: 20130719
  Transmission Date: 20140515
  Serious: No
  Sender: FDA-Public Use
  Company Number: None

PATIENT
  Age: 46 Year
  Sex: Female
  Weight: 99.5 kg

DRUGS (13)
  1. LOVENOX [Suspect]
     Indication: THROMBOSIS PROPHYLAXIS
     Route: 058
     Dates: start: 20130709, end: 20130710
  2. LOVENOX [Suspect]
     Indication: KNEE ARTHROPLASTY
     Route: 058
     Dates: start: 20130709, end: 20130710
  3. LOVENOX [Concomitant]
  4. ONDANSETRON [Concomitant]
  5. BUPIVACAINE [Concomitant]
  6. ACETAMINOPHEN [Concomitant]
  7. CELEBREX [Concomitant]
  8. DOCUSATE [Concomitant]
  9. FERROUS GLOCONATE [Concomitant]
  10. MAGNESIUM OXIDE [Concomitant]
  11. OMEPRAZOLE [Concomitant]
  12. OXYCONTIN [Concomitant]
  13. SENNA [Concomitant]

REACTIONS (1)
  - Paraesthesia [None]
